FAERS Safety Report 9355171 (Version 1)
Quarter: 2013Q2

REPORT INFORMATION
  Report Type: Spontaneous
  Country: US (occurrence: US)
  Receive Date: 20130619
  Receipt Date: 20130619
  Transmission Date: 20140414
  Serious: Yes (Other)
  Sender: FDA-Public Use
  Company Number: PHEH2013US012873

PATIENT
  Sex: Male

DRUGS (4)
  1. TEGRETOL-XR [Suspect]
     Dosage: 900 MG, (400 MG IN THE MORNING AND 500 MG IN THE EVENING)
  2. LEVETIRACETAM [Concomitant]
     Dosage: 2000 MG
  3. DEPAKOTE ER [Concomitant]
     Dosage: 1500 MG, UNK
  4. DIAMOX//ACETAZOLAMIDE [Concomitant]
     Dates: end: 201301

REACTIONS (2)
  - Hemiparesis [Unknown]
  - Dizziness [Unknown]
